FAERS Safety Report 9398845 (Version 2)
Quarter: 2013Q3

REPORT INFORMATION
  Report Type: Spontaneous
  Country: US (occurrence: US)
  Receive Date: 20130712
  Receipt Date: 20130801
  Transmission Date: 20140515
  Serious: Yes (Life-Threatening, Disabling)
  Sender: FDA-Public Use
  Company Number: US-ASTRAZENECA-2013SE51656

PATIENT
  Sex: 0

DRUGS (3)
  1. CRESTOR [Suspect]
     Indication: HYPERLIPIDAEMIA
     Route: 048
     Dates: end: 20130711
  2. TRICOR [Concomitant]
     Indication: BLOOD TRIGLYCERIDES ABNORMAL
  3. TRICOR [Concomitant]
     Indication: BLOOD TRIGLYCERIDES ABNORMAL
     Dosage: GENERIC, 200 MG UNKNOWN

REACTIONS (4)
  - Apparent death [Unknown]
  - Blood creatinine increased [Recovered/Resolved]
  - Myalgia [Unknown]
  - Blood creatine phosphokinase increased [Recovered/Resolved]
